FAERS Safety Report 14322468 (Version 6)
Quarter: 2018Q1

REPORT INFORMATION
  Report Type: Spontaneous
  Country: GB (occurrence: GB)
  Receive Date: 20171225
  Receipt Date: 20180208
  Transmission Date: 20180509
  Serious: Yes (Hospitalization, Other)
  Sender: FDA-Public Use
  Company Number: GB-TORRENT-00015880

PATIENT
  Age: 72 Year
  Sex: Female

DRUGS (6)
  1. MIRTAZAPINE. [Suspect]
     Active Substance: MIRTAZAPINE
     Indication: DEPRESSION
     Dates: start: 201311
  2. VENLAFAXINE HYDROCHLORIDE. [Suspect]
     Active Substance: VENLAFAXINE HYDROCHLORIDE
     Indication: DEPRESSION
     Dosage: AT NIGHT
     Dates: start: 201311, end: 201412
  3. ARIPIPRAZOLE. [Suspect]
     Active Substance: ARIPIPRAZOLE
     Indication: MENTAL IMPAIRMENT
     Dates: start: 201604, end: 201609
  4. SERTRALINE [Suspect]
     Active Substance: SERTRALINE HYDROCHLORIDE
     Indication: DEPRESSION
     Dates: start: 201604
  5. RISPERIDONE. [Suspect]
     Active Substance: RISPERIDONE
     Indication: DEPRESSION
  6. OLANZAPINE. [Suspect]
     Active Substance: OLANZAPINE
     Indication: DEPRESSION
     Dosage: AT NIGHT

REACTIONS (11)
  - Electrocardiogram QT prolonged [Recovered/Resolved]
  - Anxiety [Unknown]
  - Bundle branch block right [Unknown]
  - Tachycardia [Unknown]
  - Electrocardiogram ST segment abnormal [Unknown]
  - Treatment noncompliance [Unknown]
  - Blood prolactin increased [Unknown]
  - Mental impairment [Unknown]
  - Weight increased [Recovered/Resolved]
  - Palpitations [Unknown]
  - Bifascicular block [Unknown]

NARRATIVE: CASE EVENT DATE: 201412
